APPROVED DRUG PRODUCT: INDIUM IN 111 CHLORIDE
Active Ingredient: INDIUM IN-111 CHLORIDE
Strength: 5mCi/0.5ML
Dosage Form/Route: INJECTABLE;INJECTION
Application: N019841 | Product #001
Applicant: CURIUM US LLC
Approved: Sep 27, 1994 | RLD: Yes | RS: No | Type: DISCN